FAERS Safety Report 11919910 (Version 1)
Quarter: 2016Q1

REPORT INFORMATION
  Report Type: Spontaneous
  Country: US (occurrence: US)
  Receive Date: 20160115
  Receipt Date: 20160115
  Transmission Date: 20160526
  Serious: No
  Sender: FDA-Public Use
  Company Number: US-TAKEDA-2016TUS000681

PATIENT
  Age: 10 Year
  Sex: Male

DRUGS (1)
  1. PREVACID SOLUTAB [Suspect]
     Active Substance: LANSOPRAZOLE
     Indication: GASTROOESOPHAGEAL REFLUX DISEASE
     Dosage: 30 MG, BID
     Route: 048

REACTIONS (2)
  - No adverse event [Unknown]
  - Overdose [Not Recovered/Not Resolved]
